FAERS Safety Report 21799288 (Version 1)
Quarter: 2022Q4

REPORT INFORMATION
  Report Type: Spontaneous
  Country: CA (occurrence: CA)
  Receive Date: 20221230
  Receipt Date: 20221230
  Transmission Date: 20230113
  Serious: Yes (Other)
  Sender: FDA-Public Use
  Company Number: CA-JNJFOC-20221257852

PATIENT

DRUGS (1)
  1. NICORETTE [Suspect]
     Active Substance: NICOTINE
     Indication: Smoking cessation therapy
     Dosage: UNK UNK, WE (CHEW OVER 600 PIECES A WEEK)
     Route: 048

REACTIONS (3)
  - Myocardial infarction [Recovered/Resolved]
  - Nicotine dependence [Not Recovered/Not Resolved]
  - Intentional product use issue [Unknown]
